FAERS Safety Report 4536846-9 (Version None)
Quarter: 2004Q4

REPORT INFORMATION
  Report Type: 
  Country: None (occurrence: None)
  Receive Date: 20041223
  Receipt Date: 20041216
  Transmission Date: 20050328
  Serious: Yes (Other)
  Sender: FDA-Public Use
  Company Number: CA-GLAXOSMITHKLINE-A0537702A

PATIENT
  Age: 49 Year
  Sex: Male
  Weight: 79.5 kg

DRUGS (1)
  1. ZYBAN [Suspect]
     Dosage: 150MG TWICE PER DAY
     Route: 048
     Dates: start: 20041101, end: 20041111

REACTIONS (8)
  - ANXIETY [None]
  - CRYING [None]
  - DEPRESSION [None]
  - HOMICIDAL IDEATION [None]
  - INSOMNIA [None]
  - MOOD SWINGS [None]
  - SLEEP DISORDER [None]
  - SUICIDAL IDEATION [None]
